FAERS Safety Report 5762001-0 (Version None)
Quarter: 2008Q2

REPORT INFORMATION
  Report Type: 
  Country: None (occurrence: None)
  Receive Date: 20080603
  Receipt Date: 20080519
  Transmission Date: 20081010
  Serious: Yes (Hospitalization)
  Sender: FDA-Public Use
  Company Number: AZAFR200700160

PATIENT
  Age: 76 Year
  Sex: Male
  Weight: 57 kg

DRUGS (5)
  1. VIDAZA [Suspect]
     Indication: MYELODYSPLASTIC SYNDROME
     Dosage: 100 MG, DAILY X 7 DAYS), SUBCUTANEOUS
     Route: 058
     Dates: start: 20070124, end: 20070130
  2. FERRIPROX (DEFERIPRONE) [Concomitant]
  3. IMOVANE (ZOPICLONE) [Concomitant]
  4. LACTEOL (LACTOBACILLUS ACIDOPHILUS) [Concomitant]
  5. ACETAMINOPHEN [Concomitant]

REACTIONS (4)
  - APLASIA PURE RED CELL [None]
  - LOBAR PNEUMONIA [None]
  - NO THERAPEUTIC RESPONSE [None]
  - PLEURAL EFFUSION [None]
